FAERS Safety Report 20015754 (Version 1)
Quarter: 2021Q4

REPORT INFORMATION
  Report Type: Spontaneous
  Country: US (occurrence: None)
  Receive Date: 20211030
  Receipt Date: 20211030
  Transmission Date: 20220304
  Serious: Yes (Hospitalization)
  Sender: FDA-Public Use
  Company Number: None

PATIENT
  Age: 31 Year
  Sex: Male
  Weight: 80 kg

DRUGS (3)
  1. CISPLATIN [Suspect]
     Active Substance: CISPLATIN
     Indication: Product used for unknown indication
     Dates: end: 20200518
  2. IFOSFAMIDE [Suspect]
     Active Substance: IFOSFAMIDE
     Indication: Product used for unknown indication
     Dates: end: 20200518
  3. TAXOL [Suspect]
     Active Substance: PACLITAXEL
     Indication: Product used for unknown indication
     Dates: end: 20200514

REACTIONS (5)
  - Febrile neutropenia [None]
  - Diarrhoea [None]
  - Packed red blood cell transfusion [None]
  - Haemoglobin decreased [None]
  - Platelet count decreased [None]

NARRATIVE: CASE EVENT DATE: 20200522
